FAERS Safety Report 4496788-4 (Version None)
Quarter: 2004Q4

REPORT INFORMATION
  Report Type: 
  Country: None (occurrence: None)
  Receive Date: 20041109
  Receipt Date: 20041102
  Transmission Date: 20050328
  Serious: Yes (Hospitalization)
  Sender: FDA-Public Use
  Company Number: US-MERCK-0411USA00397

PATIENT
  Age: 57 Year
  Sex: Female

DRUGS (4)
  1. VIOXX [Suspect]
     Route: 048
     Dates: end: 20030101
  2. VIOXX [Suspect]
     Route: 048
     Dates: start: 20030101, end: 20040930
  3. NORVASC [Concomitant]
     Route: 065
  4. ASPIRIN [Concomitant]
     Route: 065

REACTIONS (2)
  - CARDIAC DISORDER [None]
  - HEART RATE DECREASED [None]
